FAERS Safety Report 10557056 (Version 1)
Quarter: 2014Q4

REPORT INFORMATION
  Report Type: Spontaneous
  Country: US (occurrence: None)
  Receive Date: 20141029
  Receipt Date: 20141029
  Transmission Date: 20150529
  Serious: Yes (Death, Hospitalization)
  Sender: FDA-Public Use
  Company Number: FK201404511

PATIENT
  Age: 62 Year
  Sex: Female

DRUGS (4)
  1. PROTON PUMP INHIBITROR [Concomitant]
  2. METHOTREXATE [Suspect]
     Active Substance: METHOTREXATE
     Indication: PSORIASIS
  3. IBUPROFEN. [Concomitant]
     Active Substance: IBUPROFEN
  4. ASPIRIN (ACETYLASALICYCLIC ACID) [Concomitant]

REACTIONS (9)
  - Pancytopenia [None]
  - Respiratory failure [None]
  - Renal tubular necrosis [None]
  - Infection [None]
  - Toxicity to various agents [None]
  - Drug interaction [None]
  - Psoriasis [None]
  - Renal failure [None]
  - Skin erosion [None]
